FAERS Safety Report 4579296-1 (Version None)
Quarter: 2005Q1

REPORT INFORMATION
  Report Type: 
  Country: None (occurrence: None)
  Receive Date: 20050209
  Receipt Date: 20050127
  Transmission Date: 20050727
  Serious: Yes (Hospitalization, Disabling, Other)
  Sender: FDA-Public Use
  Company Number: USA-2004-0015820

PATIENT
  Age: 47 Year
  Sex: Female
  Weight: 106.1 kg

DRUGS (16)
  1. OXYCODONE HCL [Suspect]
     Indication: PAIN
     Dosage: 60 MG, Q12H
  2. OXYIR CAPSULES (OXYCODONE HYDROCHLORIDE) [Concomitant]
  3. PROMETHAZINE [Concomitant]
  4. FOLIC ACID [Concomitant]
  5. CETACAINE (BENZALKONIUM CHLORIDE, BENZOCAINE BUTYL AMINOBENZOATE, CETY [Concomitant]
  6. ATIVAN [Concomitant]
  7. AMPICILLIN [Concomitant]
  8. VIOKASE (PANCREPILASE) [Concomitant]
  9. REGLAN [Concomitant]
  10. PROTONIX [Concomitant]
  11. HORMONE PATCH [Concomitant]
  12. AMBIEN [Concomitant]
  13. ZINC SULFATE (ZINC SULFATE) [Concomitant]
  14. VITAMIN C (ASCORBIC ACID) [Concomitant]
  15. LORCET-HD [Concomitant]
  16. ENZYMES [Concomitant]

REACTIONS (32)
  - ANXIETY [None]
  - BURN DRESSING [None]
  - COMA [None]
  - CONDITION AGGRAVATED [None]
  - CONSTIPATION [None]
  - DEAFNESS NEUROSENSORY [None]
  - DEEP VEIN THROMBOSIS [None]
  - DEPRESSION [None]
  - DIARRHOEA HAEMORRHAGIC [None]
  - DRUG DEPENDENCE [None]
  - DRUG WITHDRAWAL SYNDROME [None]
  - DRY MOUTH [None]
  - FACE OEDEMA [None]
  - HAEMORRHOIDS [None]
  - HYPERKINETIC HEART SYNDROME [None]
  - HYPOCALCAEMIA [None]
  - HYPOKALAEMIA [None]
  - INSOMNIA [None]
  - IRON DEFICIENCY ANAEMIA [None]
  - METABOLIC ALKALOSIS [None]
  - OEDEMA PERIPHERAL [None]
  - PAIN [None]
  - PANCREATITIS [None]
  - PANCYTOPENIA [None]
  - SKIN IRRITATION [None]
  - SLEEP APNOEA SYNDROME [None]
  - SLUGGISHNESS [None]
  - SNORING [None]
  - SOMNOLENCE [None]
  - TACHYCARDIA [None]
  - TINNITUS [None]
  - WEIGHT INCREASED [None]
